FAERS Safety Report 9731473 (Version 2)
Quarter: 2014Q2

REPORT INFORMATION
  Report Type: Spontaneous
  Country: FR (occurrence: FR)
  Receive Date: 20131205
  Receipt Date: 20140403
  Transmission Date: 20141212
  Serious: Yes (Hospitalization)
  Sender: FDA-Public Use
  Company Number: FR-ROCHE-1314084

PATIENT
  Age: 93 Year
  Sex: Female

DRUGS (6)
  1. ROCEPHINE [Suspect]
     Indication: CHOLANGITIS
     Route: 042
     Dates: start: 20131109, end: 20131109
  2. FLAGYL [Suspect]
     Indication: PRODUCT USED FOR UNKNOWN INDICATION
     Route: 042
     Dates: start: 20131109, end: 20131109
  3. IOMERON [Suspect]
     Indication: PRODUCT USED FOR UNKNOWN INDICATION
     Route: 065
     Dates: start: 20131108, end: 20131108
  4. IOMERON [Suspect]
     Route: 065
     Dates: start: 20140204
  5. OFLOCET (FRANCE) [Concomitant]
     Route: 042
  6. DALACINE [Concomitant]
     Route: 065

REACTIONS (1)
  - Acute generalised exanthematous pustulosis [Recovering/Resolving]
